FAERS Safety Report 12275788 (Version 6)
Quarter: 2017Q1

REPORT INFORMATION
  Report Type: Report from Study
  Country: JP (occurrence: JP)
  Receive Date: 20160418
  Receipt Date: 20170310
  Transmission Date: 20170428
  Serious: Yes (Death, Hospitalization, Other)
  Sender: FDA-Public Use
  Company Number: JP-ALEXION-A201602741

PATIENT
  Age: 80 Year
  Sex: Female
  Weight: 52 kg

DRUGS (20)
  1. VANCOMYCIN [Concomitant]
     Active Substance: VANCOMYCIN
     Indication: PYREXIA
     Dosage: 0.45-0.9G, ONCE PER 2-8 DAYS
     Route: 041
     Dates: start: 20160328, end: 20160404
  2. SOLIRIS [Suspect]
     Active Substance: ECULIZUMAB
     Dosage: 1200 MG, Q2W
     Route: 042
     Dates: start: 20160315, end: 20161122
  3. NICARDIPINE                        /00639802/ [Concomitant]
     Dosage: UNK
  4. DENOSINE                           /00090105/ [Concomitant]
     Active Substance: ADENOSINE TRIPHOSPHATE
     Indication: CYTOMEGALOVIRUS VIRAEMIA
     Dosage: 65 MG, QOD
     Route: 041
     Dates: start: 20160213, end: 20160226
  5. SOLIRIS [Suspect]
     Active Substance: ECULIZUMAB
     Indication: HAEMOLYTIC URAEMIC SYNDROME
     Dosage: 900 MG, QW
     Route: 042
     Dates: start: 20160216, end: 20160308
  6. OLMETEC [Concomitant]
     Active Substance: OLMESARTAN MEDOXOMIL
     Indication: HYPERTENSION
     Dosage: 5~10 MG, QD
     Route: 048
     Dates: start: 20160303, end: 20160411
  7. PREDONINE [Concomitant]
     Active Substance: PREDNISOLONE
     Indication: HAEMOLYTIC URAEMIC SYNDROME
     Dosage: 10-40 MG, QD
     Route: 041
     Dates: start: 20160211, end: 20160308
  8. PREDONINE [Concomitant]
     Active Substance: PREDNISOLONE
     Indication: THROMBOTIC MICROANGIOPATHY
     Dosage: 35 MG, QD
     Route: 048
     Dates: start: 20160210, end: 20160211
  9. MAXIPIME [Concomitant]
     Active Substance: CEFEPIME HYDROCHLORIDE
     Indication: PYREXIA
     Dosage: 0.5 G, QD
     Route: 041
     Dates: start: 20160209, end: 20160218
  10. PREDONINE [Concomitant]
     Active Substance: PREDNISOLONE
     Indication: THROMBOTIC MICROANGIOPATHY
  11. PREDONINE [Concomitant]
     Active Substance: PREDNISOLONE
     Indication: RASH
     Dosage: 5 MG, QD
     Route: 048
  12. SOLIRIS [Suspect]
     Active Substance: ECULIZUMAB
     Dosage: 600 MG, SINGLE
     Route: 042
     Dates: start: 20160219, end: 20160219
  13. ALLEGRA [Concomitant]
     Active Substance: FEXOFENADINE HYDROCHLORIDE
     Indication: RASH
     Dosage: 60 MG, BID
     Route: 048
     Dates: start: 20160301, end: 20160718
  14. MICARDIS [Concomitant]
     Active Substance: TELMISARTAN
     Indication: HYPERTENSION
     Dosage: 20 MG, QD
     Route: 048
     Dates: start: 20160412, end: 20161118
  15. SOLIRIS [Suspect]
     Active Substance: ECULIZUMAB
     Dosage: 600 MG, SINGLE
     Route: 042
     Dates: start: 20160222, end: 20160222
  16. NICARDIPINE                        /00639802/ [Concomitant]
     Indication: HYPERTENSION
     Dosage: ADJUSTED BY BLOOD PRESSURE
     Route: 042
     Dates: start: 20160219, end: 20160327
  17. AMLODIPINE [Concomitant]
     Active Substance: AMLODIPINE BESYLATE
     Indication: HYPERTENSION
     Dosage: 2.5~5 MG, QD
     Route: 048
     Dates: start: 20160211, end: 20161118
  18. ZOSYN [Concomitant]
     Active Substance: PIPERACILLIN SODIUM\TAZOBACTAM SODIUM
     Indication: PYREXIA
     Dosage: 2.25 G, BID
     Route: 041
     Dates: start: 20160219, end: 20160229
  19. MEROPEN                            /01250501/ [Concomitant]
     Active Substance: MEROPENEM
     Indication: PYREXIA
     Dosage: 0.25 G, QD
     Route: 041
     Dates: start: 20160229, end: 20160315
  20. FUNGUARD [Concomitant]
     Active Substance: MICAFUNGIN SODIUM
     Indication: PYREXIA
     Dosage: 150 MG, QD
     Route: 041
     Dates: start: 20160219, end: 20160226

REACTIONS (7)
  - Embolism [Fatal]
  - Renal impairment [Fatal]
  - Serum ferritin increased [Unknown]
  - Disseminated intravascular coagulation [Fatal]
  - Pleurisy [Unknown]
  - Oedema [Unknown]
  - Multiple organ dysfunction syndrome [Fatal]

NARRATIVE: CASE EVENT DATE: 20161116
